FAERS Safety Report 9127588 (Version 1)
Quarter: 2013Q1

REPORT INFORMATION
  Report Type: Spontaneous
  Country: US (occurrence: US)
  Receive Date: 20130228
  Receipt Date: 20130228
  Transmission Date: 20140127
  Serious: No
  Sender: FDA-Public Use
  Company Number: US-GLAXOSMITHKLINE-A0985961A

PATIENT
  Age: 65 Year
  Sex: Female

DRUGS (4)
  1. LAMICTAL [Suspect]
     Indication: PRODUCT USED FOR UNKNOWN INDICATION
     Dosage: 75MG PER DAY
     Route: 065
     Dates: start: 2011
  2. ZOLOFT [Suspect]
     Indication: MENTAL DISORDER
     Dosage: 100MG PER DAY
     Route: 065
     Dates: start: 200101
  3. GEODON [Suspect]
     Indication: BIPOLAR I DISORDER
     Route: 065
     Dates: start: 2001
  4. DEPAKOTE [Suspect]
     Indication: PRODUCT USED FOR UNKNOWN INDICATION
     Dosage: 700MG PER DAY
     Route: 065
     Dates: start: 2011

REACTIONS (1)
  - Hypertension [Unknown]
